FAERS Safety Report 9914737 (Version 1)
Quarter: 2014Q1

REPORT INFORMATION
  Report Type: Spontaneous
  Country: US (occurrence: None)
  Receive Date: 20140220
  Receipt Date: 20140220
  Transmission Date: 20141002
  Serious: Yes (Other)
  Sender: FDA-Public Use
  Company Number: None

PATIENT
  Age: 39 Year
  Sex: Female
  Weight: 65.77 kg

DRUGS (2)
  1. L-CITRULLINE [Suspect]
     Indication: ORNITHINE TRANSCARBAMOYLASE DEFICIENCY
     Dosage: 3.3GM  TWICE DAILY  TAKEN BY MOUTH
     Route: 048
     Dates: start: 20130926, end: 20140219
  2. L-CITRULLINE [Suspect]
     Indication: ORNITHINE TRANSCARBAMOYLASE DEFICIENCY
     Dosage: 3.3GM  TWICE DAILY  TAKEN BY MOUTH
     Route: 048
     Dates: start: 20131001, end: 20131015

REACTIONS (9)
  - Product odour abnormal [None]
  - Product taste abnormal [None]
  - Glossodynia [None]
  - Weight increased [None]
  - Swelling [None]
  - Asthenia [None]
  - Oedema [None]
  - Alopecia [None]
  - Product compounding quality issue [None]
